FAERS Safety Report 7217750-4 (Version None)
Quarter: 2011Q1

REPORT INFORMATION
  Report Type: 
  Country: None (occurrence: None)
  Receive Date: 20110110
  Receipt Date: 20101227
  Transmission Date: 20110831
  Serious: Yes (Other)
  Sender: FDA-Public Use
  Company Number: JP-ELI_LILLY_AND_COMPANY-JP201011007012

PATIENT
  Age: 67 Year
  Sex: Male

DRUGS (2)
  1. HUMULIN N [Suspect]
     Indication: DIABETES MELLITUS
     Route: 065
  2. HUMULIN N [Suspect]
     Dosage: 750 U, UNK
     Dates: start: 20101125, end: 20101125

REACTIONS (3)
  - BLOOD GLUCOSE DECREASED [None]
  - OVERDOSE [None]
  - SUICIDE ATTEMPT [None]
